FAERS Safety Report 13034845 (Version 1)
Quarter: 2016Q4

REPORT INFORMATION
  Report Type: Spontaneous
  Country: BR (occurrence: BR)
  Receive Date: 20161216
  Receipt Date: 20161216
  Transmission Date: 20170207
  Serious: Yes (Hospitalization, Other)
  Sender: FDA-Public Use
  Company Number: BR-AMGEN-BRASP2016174797

PATIENT
  Sex: Male

DRUGS (1)
  1. ARANESP [Suspect]
     Active Substance: DARBEPOETIN ALFA
     Indication: ANAEMIA
     Dosage: 100 MCG/ML, UNK
     Route: 065

REACTIONS (5)
  - Neoplasm malignant [Unknown]
  - Drug dose omission [Unknown]
  - Renal failure [Unknown]
  - Oral surgery [Unknown]
  - Red blood cell count decreased [Unknown]
